FAERS Safety Report 8689886 (Version 2)
Quarter: 2013Q4

REPORT INFORMATION
  Report Type: Spontaneous
  Country: US (occurrence: US)
  Receive Date: 20120727
  Receipt Date: 20131031
  Transmission Date: 20140711
  Serious: No
  Sender: FDA-Public Use
  Company Number: US-009507513-2012SP036910

PATIENT
  Age: 49 Year
  Sex: Female

DRUGS (2)
  1. PEGINTRON [Suspect]
     Dosage: 150 ?G, QW
     Route: 058
     Dates: start: 20120215
  2. REBETOL [Suspect]

REACTIONS (1)
  - Fatigue [Not Recovered/Not Resolved]
